FAERS Safety Report 25390152 (Version 3)
Quarter: 2025Q4

REPORT INFORMATION
  Report Type: Report from Study
  Country: JP (occurrence: JP)
  Receive Date: 20250603
  Receipt Date: 20251014
  Transmission Date: 20260117
  Serious: Yes (Other)
  Sender: JOHNSON AND JOHNSON
  Company Number: JP-JNJFOC-20240900797

PATIENT

DRUGS (1)
  1. SIMPONI [Suspect]
     Active Substance: GOLIMUMAB
     Indication: Rheumatoid arthritis
     Dosage: DOSE UNKNOWN
     Route: 058

REACTIONS (4)
  - Subarachnoid haemorrhage [Unknown]
  - Rash [Unknown]
  - Off label use [Unknown]
  - Drug ineffective [Unknown]
